FAERS Safety Report 6187499-8 (Version None)
Quarter: 2009Q2

REPORT INFORMATION
  Report Type: 
  Country: None (occurrence: None)
  Receive Date: 20090512
  Receipt Date: 20090504
  Transmission Date: 20091009
  Serious: Yes (Hospitalization)
  Sender: FDA-Public Use
  Company Number: US-GENENTECH-281403

PATIENT
  Sex: Male
  Weight: 75.283 kg

DRUGS (13)
  1. BEVACIZUMAB [Suspect]
     Indication: RECTAL CANCER
     Dosage: 5 MG/KG, DAYS 1+15
     Dates: start: 20090303, end: 20090303
  2. FLUOROURACIL [Suspect]
     Indication: RECTAL CANCER
     Dosage: 400 MG/M2, UNK
     Dates: start: 20090303, end: 20090303
  3. FLUOROURACIL [Suspect]
     Dosage: 2400 MG/M2, UNK
  4. OXALIPLATIN [Suspect]
     Indication: RECTAL CANCER
     Dosage: 85 MG/M2, DAYS 1+15
     Dates: start: 20090303, end: 20090303
  5. LEUCOVORIN CALCIUM [Suspect]
     Indication: RECTAL CANCER
     Dosage: 350 MG, DAYS 1+15
     Dates: start: 20090303, end: 20090303
  6. OXYCONTIN [Concomitant]
     Indication: DRUG USE FOR UNKNOWN INDICATION
  7. FLOMAX [Concomitant]
     Indication: DRUG USE FOR UNKNOWN INDICATION
  8. STOOL SOFTENER (NAME UNK) [Concomitant]
     Indication: DRUG USE FOR UNKNOWN INDICATION
  9. TYLENOL [Concomitant]
     Indication: DRUG USE FOR UNKNOWN INDICATION
     Dosage: 650 MG, Q4H
     Dates: start: 20090406
  10. ATIVAN [Concomitant]
     Indication: DRUG USE FOR UNKNOWN INDICATION
     Dosage: UNK
     Dates: start: 20090406
  11. TYLOX [Concomitant]
     Indication: DRUG USE FOR UNKNOWN INDICATION
     Dosage: UNK
     Dates: start: 20090406
  12. LOMOTIL [Concomitant]
     Indication: DRUG USE FOR UNKNOWN INDICATION
     Dosage: UNK
     Dates: start: 20090420
  13. LINEZOLID [Concomitant]
     Indication: DRUG USE FOR UNKNOWN INDICATION
     Dosage: 600 MG, UNK
     Dates: start: 20090420, end: 20090425

REACTIONS (2)
  - ANORECTAL OPERATION [None]
  - SMALL INTESTINAL OBSTRUCTION [None]
